FAERS Safety Report 5716203-X (Version None)
Quarter: 2008Q2

REPORT INFORMATION
  Report Type: 
  Country: None (occurrence: None)
  Receive Date: 20080417
  Receipt Date: 20071220
  Transmission Date: 20081010
  Serious: No
  Sender: FDA-Public Use
  Company Number: 07H-163-0313616-00

PATIENT
  Age: 98 Year
  Sex: Female
  Weight: 70.3075 kg

DRUGS (2)
  1. SODIUM CHLORIDE [Suspect]
     Indication: NAUSEA
     Dosage: 1000ML, INTRAVENOUS
     Route: 042
     Dates: start: 20071213
  2. SODIUM CHLORIDE [Suspect]
     Indication: VOMITING
     Dosage: 1000ML, INTRAVENOUS
     Route: 042
     Dates: start: 20071213

REACTIONS (1)
  - INCORRECT DRUG ADMINISTRATION RATE [None]
